FAERS Safety Report 17608634 (Version 2)
Quarter: 2020Q2

REPORT INFORMATION
  Report Type: Spontaneous
  Country: DE (occurrence: DE)
  Receive Date: 20200401
  Receipt Date: 20200403
  Transmission Date: 20200713
  Serious: Yes (Other)
  Sender: FDA-Public Use
  Company Number: DE-TERSERA THERAPEUTICS LLC-2020TRS000780

PATIENT

DRUGS (2)
  1. ZOLADEX [Suspect]
     Active Substance: GOSERELIN ACETATE
     Indication: OVARIAN REPAIR
     Dosage: 3.6 MG, EVERY 4 WEEKS
     Route: 058
  2. KADCYLA [Concomitant]
     Active Substance: ADO-TRASTUZUMAB EMTANSINE
     Indication: OVARIAN REPAIR
     Dosage: EVERY THREE WEEK
     Route: 065
     Dates: end: 20200217

REACTIONS (6)
  - Hepatic enzyme increased [Unknown]
  - Platelet count decreased [Not Recovered/Not Resolved]
  - Pain in extremity [Unknown]
  - Headache [Unknown]
  - Hypoaesthesia [Unknown]
  - Off label use [Unknown]
